FAERS Safety Report 7896955-3 (Version None)
Quarter: 2011Q4

REPORT INFORMATION
  Report Type: 
  Country: None (occurrence: None)
  Receive Date: 20111031
  Receipt Date: 20110712
  Transmission Date: 20120403
  Serious: Yes (Hospitalization)
  Sender: FDA-Public Use
  Company Number: 318001

PATIENT
  Age: 67 Year
  Sex: Female

DRUGS (12)
  1. MULTIVITE /00067501/(ASCORBIC ACID, ERGOCALCIFEROL, NICOTINAMIDE, RETI [Concomitant]
  2. VITAMIN C /00008001/ (ASCORBIC ACID) [Concomitant]
  3. VYTORIN [Concomitant]
  4. LIPITOR [Concomitant]
  5. CRESTOR [Concomitant]
  6. CALCIUM CARBONATE [Concomitant]
  7. VAGIFEM [Suspect]
     Indication: ATROPHIC VULVOVAGINITIS
     Dosage: 25 UG, QD, VAGINAL
     Route: 067
  8. VAGIFEM [Suspect]
  9. VAGIFEM [Suspect]
  10. ACTONEL [Concomitant]
  11. VITAMIN A /00056001/ (RETINOL) [Concomitant]
  12. VAGIFEM [Suspect]
     Indication: ATROPHIC VULVOVAGINITIS
     Dosage: 25 UG, UNK, VAGINAL

REACTIONS (3)
  - BREAST CANCER [None]
  - HYPERGAMMAGLOBULINAEMIA BENIGN MONOCLONAL [None]
  - BREAST CANCER IN SITU [None]
